FAERS Safety Report 5826187-1 (Version None)
Quarter: 2008Q3

REPORT INFORMATION
  Report Type: 
  Country: None (occurrence: None)
  Receive Date: 20080729
  Receipt Date: 20080717
  Transmission Date: 20090109
  Serious: Yes (Death, Life-Threatening, Disabling, Other)
  Sender: FDA-Public Use
  Company Number: IN-PFIZER INC-2008059880

PATIENT
  Age: 37 Year
  Sex: Male

DRUGS (15)
  1. DOXORUBICIN HCL [Suspect]
     Indication: BURKITT'S LYMPHOMA
  2. ETOPOSIDE [Suspect]
     Indication: TESTIS CANCER
     Dosage: DAILY DOSE:100MG/M2
     Dates: start: 20060401, end: 20060701
  3. ETOPOSIDE [Suspect]
     Indication: BURKITT'S LYMPHOMA
  4. ETOPOSIDE [Suspect]
     Dosage: DAILY DOSE:100MG/M2
  5. ETOPOSIDE [Suspect]
     Dosage: DAILY DOSE:3.5MG/M*2
  6. CISPLATIN [Suspect]
     Indication: TESTIS CANCER
     Dosage: DAILY DOSE:20MG/M2
     Dates: start: 20060401, end: 20060701
  7. CISPLATIN [Suspect]
     Dosage: DAILY DOSE:20MG/M2
  8. CISPLATIN [Suspect]
     Dosage: DAILY DOSE:700MG/M*2
  9. VINCRISTINE SULFATE [Suspect]
     Indication: TESTIS CANCER
     Dates: start: 20070101, end: 20070101
  10. IFOSFAMIDE [Suspect]
     Indication: TESTIS CANCER
     Dosage: DAILY DOSE:2000MG/M*2
  11. IFOSFAMIDE [Suspect]
     Indication: BURKITT'S LYMPHOMA
  12. CYCLOPHOSPHAMIDE [Suspect]
     Indication: BURKITT'S LYMPHOMA
  13. METHOTREXATE [Suspect]
     Indication: BURKITT'S LYMPHOMA
  14. CYTARABINE [Suspect]
     Indication: BURKITT'S LYMPHOMA
  15. MESNA [Concomitant]

REACTIONS (6)
  - BONE MARROW TOXICITY [None]
  - BURKITT'S LEUKAEMIA [None]
  - DISSEMINATED INTRAVASCULAR COAGULATION [None]
  - HEPATOTOXICITY [None]
  - NEOPLASM MALIGNANT [None]
  - NEUROPATHY PERIPHERAL [None]
